FAERS Safety Report 8477670-4 (Version None)
Quarter: 2012Q2

REPORT INFORMATION
  Report Type: 
  Country: None (occurrence: None)
  Receive Date: 20120629
  Receipt Date: 20120626
  Transmission Date: 20120825
  Serious: Yes (Life-Threatening, Hospitalization, Disabling)
  Sender: FDA-Public Use
  Company Number: JP-B.I. PHARMACEUTICALS,INC./RIDGEFIELD-2012-BP-02462NB

PATIENT
  Sex: Female
  Weight: 38.6 kg

DRUGS (7)
  1. LANIRAPID [Concomitant]
     Indication: ATRIAL FIBRILLATION
     Dosage: 0.1 MG
     Route: 065
     Dates: start: 20111114
  2. PRADAXA [Suspect]
     Indication: ATRIAL FIBRILLATION
     Dosage: 220 MG
     Route: 048
     Dates: start: 20111114, end: 20120201
  3. DIOVAN [Concomitant]
     Indication: HYPERTENSION
     Route: 065
     Dates: start: 20111114
  4. FAMOTIDINE [Concomitant]
     Indication: ABDOMINAL PAIN UPPER
     Dosage: 40 MG
     Route: 065
     Dates: start: 20111118
  5. GRANDAXIN [Concomitant]
     Route: 065
  6. LASIX [Concomitant]
     Indication: HYPERTENSION
     Route: 065
     Dates: start: 20111114
  7. CARVEDILOL [Concomitant]
     Indication: HYPERTENSION
     Route: 065
     Dates: start: 20111114

REACTIONS (2)
  - CEREBELLAR INFARCTION [None]
  - BRAIN OEDEMA [None]
